FAERS Safety Report 5306511-9 (Version None)
Quarter: 2007Q2

REPORT INFORMATION
  Report Type: 
  Country: None (occurrence: None)
  Receive Date: 20070417
  Receipt Date: 20070403
  Transmission Date: 20071010
  Serious: Yes (Death)
  Sender: FDA-Public Use
  Company Number: 070404-0000372

PATIENT
  Age: 6 Year
  Sex: Female

DRUGS (6)
  1. DACTINOMYCIN [Suspect]
     Indication: RHABDOMYOSARCOMA
  2. IFOSFAMIDE [Suspect]
     Indication: RHABDOMYOSARCOMA
  3. VINCRISTINE [Suspect]
     Indication: RHABDOMYOSARCOMA
  4. CARBOPLATIN [Suspect]
     Indication: RHABDOMYOSARCOMA
  5. EPIRUBICIN [Suspect]
     Indication: RHABDOMYOSARCOMA
  6. ETOPOSIDE [Suspect]
     Indication: RHABDOMYOSARCOMA

REACTIONS (11)
  - BETA HAEMOLYTIC STREPTOCOCCAL INFECTION [None]
  - CANDIDA SEROLOGY POSITIVE [None]
  - DRUG INTERACTION [None]
  - DRUG INTERACTION POTENTIATION [None]
  - FEBRILE NEUTROPENIA [None]
  - MUCOSAL INFLAMMATION [None]
  - NO THERAPEUTIC RESPONSE [None]
  - PNEUMOTHORAX [None]
  - RADIATION PNEUMONITIS [None]
  - RESPIRATORY FAILURE [None]
  - STRIDOR [None]
